FAERS Safety Report 6132203-2 (Version None)
Quarter: 2009Q1

REPORT INFORMATION
  Report Type: 
  Country: None (occurrence: None)
  Receive Date: 20090323
  Receipt Date: 20090316
  Transmission Date: 20090719
  Serious: Yes (Death, Disabling)
  Sender: FDA-Public Use
  Company Number: 2009US000118

PATIENT
  Age: 27 Year
  Sex: Female
  Weight: 60 kg

DRUGS (5)
  1. AMBISOME [Suspect]
     Indication: FEBRILE NEUTROPENIA
     Dosage: 300, UID/QD, IV NOS
     Route: 042
     Dates: start: 20090118, end: 20090118
  2. MORPHINE [Concomitant]
  3. MEROPENEM (MEROPENEM) [Concomitant]
  4. VANCOMYCIN [Concomitant]
  5. GRANOCYTE (LENOGRASTIM) [Concomitant]

REACTIONS (2)
  - BACK PAIN [None]
  - INFUSION RELATED REACTION [None]
